FAERS Safety Report 8206937-X (Version None)
Quarter: 2012Q1

REPORT INFORMATION
  Report Type: 
  Country: None (occurrence: None)
  Receive Date: 20120314
  Receipt Date: 20120302
  Transmission Date: 20120608
  Serious: No
  Sender: FDA-Public Use
  Company Number: US-JNJFOC-20120302662

PATIENT
  Sex: Female

DRUGS (14)
  1. CARAFATE [Concomitant]
     Route: 048
  2. OXYCODONE HCL [Concomitant]
     Dosage: TWICE DAILY OR AS NEEDED
     Route: 048
  3. SINGULAIR [Concomitant]
     Route: 048
  4. PROTONIX [Concomitant]
     Route: 048
  5. BACLOFEN [Concomitant]
     Route: 048
  6. RANITIDINE [Concomitant]
     Route: 048
  7. VALIUM [Concomitant]
     Route: 048
  8. PHENERGAN [Concomitant]
     Route: 048
  9. PROZAC [Concomitant]
     Route: 048
     Dates: end: 20120302
  10. INVEGA SUSTENNA [Suspect]
     Indication: SCHIZOAFFECTIVE DISORDER
     Route: 030
     Dates: start: 20110501
  11. VESICARE [Concomitant]
     Route: 048
  12. PRIMIDONE [Concomitant]
     Route: 048
  13. ALLOPURINOL [Concomitant]
     Route: 048
  14. FENOFIBRATE [Concomitant]
     Route: 048

REACTIONS (2)
  - HEPATIC STEATOSIS [None]
  - ABNORMAL WEIGHT GAIN [None]
